FAERS Safety Report 10732666 (Version 1)
Quarter: 2015Q1

REPORT INFORMATION
  Report Type: Spontaneous
  Country: US (occurrence: None)
  Receive Date: 20150120
  Receipt Date: 20150120
  Transmission Date: 20150721
  Serious: Yes (Hospitalization)
  Sender: FDA-Public Use
  Company Number: US-H14001-15-00052

PATIENT
  Age: 62 Year
  Sex: Male

DRUGS (20)
  1. TH-302 [Suspect]
     Active Substance: EVOFOSFAMIDE
     Indication: PLASMA CELL MYELOMA
     Dosage: 680 MG, ON DAYS 1, 4, 8  AND 11 OF A 21-DAY CYCLE, INTRAVENOUS DRIP
     Route: 041
     Dates: start: 20140228
  2. CETYLPYRIDINIUM CHLORIDE. [Concomitant]
     Active Substance: CETYLPYRIDINIUM CHLORIDE
  3. MAGIC MOUTHWASH (MACLEANS MOUTHGUARD) (UNKNOWN) (CETYLPYRIDINIUM CHLORIDE, SODIUM FLUORIDE) [Concomitant]
  4. LIDOCAINE BENADRYL (LIDOCAINE) [Concomitant]
  5. DEXAMETHASONE (DEXAMETHASONE SODIUM PHOSPHATE) (UNKNOWN) (DEXAMETHASONE SODIUM PHOSPHATE) [Suspect]
     Active Substance: DEXAMETHASONE
     Indication: PLASMA CELL MYELOMA
     Dosage: 40 MG, CYCLE 1, INTRAVENOUS BOLUS
     Route: 040
     Dates: start: 20140228, end: 2014
  6. VITAMIN B12 [Concomitant]
     Active Substance: CYANOCOBALAMIN
  7. LEVAQUIN [Concomitant]
     Active Substance: LEVOFLOXACIN
  8. PRAVASTATIN [Concomitant]
     Active Substance: PRAVASTATIN\PRAVASTATIN SODIUM
  9. DECADRON [Concomitant]
     Active Substance: DEXAMETHASONE
  10. SINGULAIR (MONTELUKAST SODIUM) [Concomitant]
  11. ZOMETA [Concomitant]
     Active Substance: ZOLEDRONIC ACID
  12. ZOFRAN (ONDANSETRON) [Concomitant]
  13. CEFUROXIME. [Concomitant]
     Active Substance: CEFUROXIME
  14. TRICOR [Concomitant]
     Active Substance: FENOFIBRATE
  15. SILVADENS (SULFADIAZINE SILVER) [Concomitant]
  16. TRIAMCINOLONE ACETONIDE. [Concomitant]
     Active Substance: TRIAMCINOLONE ACETONIDE
  17. HYTRIN (TERAZOSIN HYDROCHLORIDE) [Concomitant]
  18. PHENERGAN [Concomitant]
     Active Substance: PROMETHAZINE HYDROCHLORIDE
  19. NORMAL SALINE (SODIUM CHLORIDE) [Concomitant]
  20. DOCUSATE [Concomitant]
     Active Substance: DOCUSATE

REACTIONS (6)
  - Plasma cell leukaemia [None]
  - Neutropenia [None]
  - Fluid overload [None]
  - Clostridium difficile colitis [None]
  - Lobar pneumonia [None]
  - Plasma cell myeloma [None]

NARRATIVE: CASE EVENT DATE: 201404
